FAERS Safety Report 11536807 (Version 1)
Quarter: 2015Q3

REPORT INFORMATION
  Report Type: Report from Study
  Country: BR (occurrence: BR)
  Receive Date: 20150922
  Receipt Date: 20150922
  Transmission Date: 20151125
  Serious: Yes (Hospitalization, Other)
  Sender: FDA-Public Use
  Company Number: BR-BAYER-2015-166128

PATIENT
  Age: 63 Year
  Sex: Male
  Weight: 83 kg

DRUGS (2)
  1. NEXAVAR [Suspect]
     Active Substance: SORAFENIB
     Indication: HEPATIC CANCER
     Dosage: 800 MG, QD
     Route: 048
     Dates: start: 20150416, end: 2015
  2. NEXAVAR [Suspect]
     Active Substance: SORAFENIB
     Indication: HEPATIC CANCER
     Dosage: 400 MG, QD
     Route: 048
     Dates: start: 2015

REACTIONS (8)
  - Skin fissures [Not Recovered/Not Resolved]
  - Fatigue [None]
  - Abdominal pain [Recovering/Resolving]
  - Sluggishness [None]
  - Anal fissure [Recovering/Resolving]
  - Diarrhoea [Recovering/Resolving]
  - Weight decreased [Not Recovered/Not Resolved]
  - Asthenia [Recovering/Resolving]

NARRATIVE: CASE EVENT DATE: 2015
